FAERS Safety Report 4692123-7 (Version None)
Quarter: 2005Q2

REPORT INFORMATION
  Report Type: 
  Country: None (occurrence: None)
  Receive Date: 20050614
  Receipt Date: 20050601
  Transmission Date: 20051028
  Serious: Yes (Disabling)
  Sender: FDA-Public Use
  Company Number: 2005085235

PATIENT
  Sex: Male
  Weight: 103.4201 kg

DRUGS (2)
  1. CELEBREX [Suspect]
     Indication: ARTHRITIS
     Dosage: 400 MG (200 MG 2 IN 1 D) ORAL
     Route: 048
     Dates: start: 19980101, end: 20020101
  2. BEXTRA [Suspect]
     Indication: ARTHRITIS
     Dosage: 20 MG (20 MG 1 IN 1 D) ORAL
     Route: 048
     Dates: start: 20020101, end: 20050501

REACTIONS (1)
  - BODY HEIGHT DECREASED [None]
